FAERS Safety Report 8791039 (Version 1)
Quarter: 2012Q4

REPORT INFORMATION
  Report Type: Spontaneous
  Country: US (occurrence: None)
  Receive Date: 20120906
  Receipt Date: 20120906
  Transmission Date: 20130627
  Serious: Yes (Hospitalization)
  Sender: FDA-Public Use
  Company Number: USA/USA/12/0025605

PATIENT
  Age: 27 Year
  Sex: Female

DRUGS (6)
  1. ZIPRASIDONE [Suspect]
     Indication: BIPOLAR DISORDER
  2. VALPROIC ACID [Suspect]
  3. MIRTAZAPINE (MIRTAZAPINE) [Concomitant]
  4. TRIMETHOPRIM-SULFAMETHOXAZOLE (BACTRIM) [Concomitant]
  5. AMOXICILLIN (AMOXICILLIN) [Concomitant]
  6. CLINDAMYCIN (CLINDAMYCIN) [Concomitant]

REACTIONS (10)
  - Drug reaction with eosinophilia and systemic symptoms [None]
  - Upper respiratory tract infection [None]
  - Hypotension [None]
  - Tachycardia [None]
  - Mental status changes [None]
  - Delirium [None]
  - Epstein-Barr virus infection [None]
  - Hepatitis [None]
  - Hepatic necrosis [None]
  - Leukaemoid reaction [None]
